FAERS Safety Report 5875824-4 (Version None)
Quarter: 2008Q3

REPORT INFORMATION
  Report Type: 
  Country: None (occurrence: None)
  Receive Date: 20080909
  Receipt Date: 20080828
  Transmission Date: 20090109
  Serious: Yes (Hospitalization, Other)
  Sender: FDA-Public Use
  Company Number: US-PFIZER INC-2008056987

PATIENT
  Sex: Female
  Weight: 63.5 kg

DRUGS (3)
  1. MARAVIROC [Suspect]
     Indication: HIV INFECTION
     Route: 048
     Dates: start: 20060125
  2. COMBIVIR [Suspect]
     Indication: HIV INFECTION
     Dates: end: 20061221
  3. TRUVADA [Concomitant]
     Indication: HIV INFECTION
     Dosage: TEXT:200MG/300MG-FREQ:DAILY
     Route: 048
     Dates: start: 20061222

REACTIONS (2)
  - BREAST CALCIFICATIONS [None]
  - BREAST CANCER [None]
